FAERS Safety Report 6104068-6 (Version None)
Quarter: 2009Q1

REPORT INFORMATION
  Report Type: 
  Country: None (occurrence: None)
  Receive Date: 20090305
  Receipt Date: 20090225
  Transmission Date: 20090719
  Serious: Yes (Death, Congenital Anomaly)
  Sender: FDA-Public Use
  Company Number: US-PFIZER INC-2008049826

PATIENT
  Sex: Female

DRUGS (4)
  1. ZOLOFT [Suspect]
     Indication: DEPRESSION
     Route: 064
     Dates: start: 19970701, end: 19970901
  2. PAXIL [Concomitant]
     Indication: DEPRESSION
     Dates: start: 19970701
  3. PROZAC [Concomitant]
     Indication: DEPRESSION
     Dates: start: 19970101
  4. TERBUTALINE [Concomitant]

REACTIONS (4)
  - CONGENITAL DIAPHRAGMATIC HERNIA [None]
  - DEXTROCARDIA [None]
  - DRUG EXPOSURE DURING PREGNANCY [None]
  - RESPIRATORY DISTRESS [None]
